FAERS Safety Report 7661044-X (Version None)
Quarter: 2011Q3

REPORT INFORMATION
  Report Type: 
  Country: None (occurrence: None)
  Receive Date: 20110805
  Receipt Date: 20100930
  Transmission Date: 20111222
  Serious: No
  Sender: FDA-Public Use
  Company Number: US-ABBOTT-10P-163-0675124-00

PATIENT
  Sex: Male

DRUGS (1)
  1. NIASPAN [Suspect]
     Indication: CARDIAC DISORDER
     Dates: start: 20100927, end: 20100927

REACTIONS (3)
  - FEELING HOT [None]
  - PRURITUS [None]
  - RASH [None]
